FAERS Safety Report 4497811-3 (Version None)
Quarter: 2004Q4

REPORT INFORMATION
  Report Type: 
  Country: None (occurrence: None)
  Receive Date: 20041104
  Receipt Date: 20041022
  Transmission Date: 20050328
  Serious: Yes (Life-Threatening)
  Sender: FDA-Public Use
  Company Number: 2004IC000890

PATIENT
  Age: 63 Year

DRUGS (2)
  1. FLUOROURACIL [Suspect]
     Indication: LARYNGEAL CANCER
     Dosage: 1000 MG; INTRAVENOUS
     Route: 042
     Dates: start: 20040729, end: 20040909
  2. CISPLATIN [Suspect]
     Indication: LARYNGEAL CANCER
     Dosage: 180 MG; INTRAVENOUS
     Route: 042
     Dates: start: 20040728, end: 20040904

REACTIONS (6)
  - ABNORMAL BEHAVIOUR [None]
  - AMNESIA [None]
  - BLOOD CREATINE PHOSPHOKINASE INCREASED [None]
  - ENCEPHALOPATHY [None]
  - LOSS OF CONSCIOUSNESS [None]
  - PYREXIA [None]
